FAERS Safety Report 8922867 (Version 1)
Quarter: 2012Q4

REPORT INFORMATION
  Report Type: 
  Country: US (occurrence: US)
  Receive Date: 20121123
  Receipt Date: 20121123
  Transmission Date: 20130627
  Serious: Yes (Hospitalization, Other)
  Sender: FDA-Public Use
  Company Number: US-JNJFOC-20121109162

PATIENT
  Sex: Female
  Weight: 89.36 kg

DRUGS (2)
  1. TOPAMAX [Suspect]
     Indication: CONVULSION
     Dosage: 50 mg/2-4 times a dayinitiated in ^early-middle 2000s^
     Route: 048
  2. TOPIRAMATE [Suspect]
     Indication: CONVULSION
     Dosage: 50 mg/2-4 times per day
     Route: 048

REACTIONS (8)
  - Intestinal obstruction [Recovered/Resolved]
  - Partial seizures [Recovered/Resolved]
  - Sick sinus syndrome [Not Recovered/Not Resolved]
  - Coagulopathy [Not Recovered/Not Resolved]
  - Tachycardia [Not Recovered/Not Resolved]
  - Headache [Recovered/Resolved]
  - Muscle twitching [Recovered/Resolved]
  - Drug ineffective [Recovered/Resolved]
